FAERS Safety Report 4471038-3 (Version None)
Quarter: 2004Q4

REPORT INFORMATION
  Report Type: 
  Country: None (occurrence: None)
  Receive Date: 20041011
  Receipt Date: 20040922
  Transmission Date: 20050328
  Serious: Yes (Death)
  Sender: FDA-Public Use
  Company Number: FR-GLAXOSMITHKLINE-B0346135A

PATIENT
  Age: 67 Year
  Sex: Female
  Weight: 87 kg

DRUGS (7)
  1. VALACYCLOVIR HCL [Suspect]
     Indication: HERPES ZOSTER
     Dosage: 500MG SINGLE DOSE
     Route: 048
     Dates: start: 20040323, end: 20040323
  2. ATARAX [Suspect]
     Dosage: 1UNIT PER DAY
     Route: 065
     Dates: end: 20040323
  3. DOGMATIL [Suspect]
     Dosage: 1UNIT PER DAY
     Dates: end: 20040323
  4. TAHOR [Suspect]
     Dosage: 1UNIT PER DAY
     Route: 048
     Dates: end: 20040323
  5. ANAFRANIL [Suspect]
     Route: 048
     Dates: end: 20040323
  6. HAVLANE [Suspect]
     Route: 048
     Dates: end: 20040323
  7. ALDACTAZINE [Concomitant]
     Route: 048
     Dates: end: 20040323

REACTIONS (1)
  - VENTRICULAR TACHYCARDIA [None]
